FAERS Safety Report 14372210 (Version 1)
Quarter: 2018Q1

REPORT INFORMATION
  Report Type: Report from Study
  Country: CA (occurrence: CA)
  Receive Date: 20180110
  Receipt Date: 20180110
  Transmission Date: 20180509
  Serious: Yes (Other)
  Sender: FDA-Public Use
  Company Number: CA-AMGEN-CANSL2018002073

PATIENT
  Sex: Female

DRUGS (1)
  1. ENBREL [Suspect]
     Active Substance: ETANERCEPT
     Indication: RHEUMATOID ARTHRITIS
     Dosage: 50 MG, UNK
     Route: 065
     Dates: start: 20150922

REACTIONS (6)
  - Fine motor skill dysfunction [Unknown]
  - Coordination abnormal [Unknown]
  - Fatigue [Unknown]
  - Nervousness [Unknown]
  - Loss of personal independence in daily activities [Unknown]
  - Aphasia [Unknown]
